FAERS Safety Report 8971265 (Version 1)
Quarter: 2012Q4

REPORT INFORMATION
  Report Type: 
  Country: IT (occurrence: IT)
  Receive Date: 20121217
  Receipt Date: 20121217
  Transmission Date: 20130627
  Serious: Yes (Hospitalization)
  Sender: FDA-Public Use
  Company Number: IT-GLAXOSMITHKLINE-B0852625A

PATIENT
  Age: 32 Year
  Sex: Female

DRUGS (4)
  1. WELLBUTRIN [Suspect]
     Indication: BIPOLAR II DISORDER
     Route: 065
     Dates: start: 20121128, end: 20121128
  2. LAMICTAL [Suspect]
     Indication: BIPOLAR II DISORDER
     Route: 065
     Dates: start: 20121128, end: 20121128
  3. CHLORPROMAZINE HYDROCHLORIDE [Suspect]
     Indication: BIPOLAR II DISORDER
     Dosage: 150MG per day
     Route: 048
     Dates: start: 20121128, end: 20121128
  4. ALPRAZOLAM [Suspect]
     Indication: BIPOLAR II DISORDER
     Route: 065
     Dates: start: 20121128, end: 20121128

REACTIONS (2)
  - Suicide attempt [Recovered/Resolved]
  - Psychomotor skills impaired [Recovered/Resolved]
